FAERS Safety Report 4955175-2 (Version None)
Quarter: 2006Q1

REPORT INFORMATION
  Report Type: 
  Country: None (occurrence: None)
  Receive Date: 20060328
  Receipt Date: 20060316
  Transmission Date: 20060701
  Serious: Yes (Other)
  Sender: FDA-Public Use
  Company Number: US-JNJFOC-20060304249

PATIENT
  Sex: Male

DRUGS (19)
  1. INFLIXIMAB [Suspect]
     Indication: RHEUMATOID ARTHRITIS
     Route: 042
  2. ASPIRIN [Concomitant]
  3. MULTI-VITAMIN [Concomitant]
  4. MULTI-VITAMIN [Concomitant]
  5. MULTI-VITAMIN [Concomitant]
  6. MULTI-VITAMIN [Concomitant]
  7. MULTI-VITAMIN [Concomitant]
  8. MULTI-VITAMIN [Concomitant]
  9. MULTI-VITAMIN [Concomitant]
  10. MULTI-VITAMIN [Concomitant]
  11. LESCOL [Concomitant]
  12. ACTONEL [Concomitant]
  13. VYTORIN [Concomitant]
  14. FOLIC ACID [Concomitant]
  15. METHOTREXATE [Concomitant]
  16. NEXIUM [Concomitant]
  17. ZESTORETIC [Concomitant]
  18. ZESTORETIC [Concomitant]
  19. TYLENOL [Concomitant]

REACTIONS (1)
  - NON-HODGKIN'S LYMPHOMA [None]
